FAERS Safety Report 8544648-1 (Version None)
Quarter: 2012Q2

REPORT INFORMATION
  Report Type: 
  Country: None (occurrence: None)
  Receive Date: 20120416
  Receipt Date: 20100423
  Transmission Date: 20120825
  Serious: Yes (Other)
  Sender: FDA-Public Use
  Company Number: PHHY2010US13322

PATIENT
  Sex: Female

DRUGS (3)
  1. DIOVAN [Suspect]
  2. TOPROL-XL [Suspect]
  3. NORVASC [Suspect]

REACTIONS (6)
  - FLUSHING [None]
  - FALL [None]
  - WRONG DRUG ADMINISTERED [None]
  - FEELING ABNORMAL [None]
  - HEART RATE INCREASED [None]
  - PRESYNCOPE [None]
